FAERS Safety Report 25823701 (Version 1)
Quarter: 2025Q3

REPORT INFORMATION
  Report Type: Spontaneous
  Country: US (occurrence: None)
  Receive Date: 20250918
  Receipt Date: 20250918
  Transmission Date: 20251020
  Serious: Yes (unspecified)
  Sender: FDA-CTU
  Company Number: None

PATIENT
  Age: 74 Year
  Sex: Female
  Weight: 51.75 kg

DRUGS (2)
  1. EVENITY [Suspect]
     Active Substance: ROMOSOZUMAB-AQQG
     Indication: Osteoporosis
  2. EVENITY [Concomitant]
     Active Substance: ROMOSOZUMAB-AQQG
     Dates: start: 20250429, end: 20250728

REACTIONS (2)
  - Rash [None]
  - Pruritus [None]

NARRATIVE: CASE EVENT DATE: 20250728
